FAERS Safety Report 10621535 (Version 1)
Quarter: 2014Q4

REPORT INFORMATION
  Report Type: Spontaneous
  Country: US (occurrence: None)
  Receive Date: 20141121
  Receipt Date: 20141121
  Transmission Date: 20150529
  Serious: Yes (Hospitalization)
  Sender: FDA-Public Use
  Company Number: A-US2014-102679

PATIENT
  Age: 52 Year
  Sex: Male

DRUGS (2)
  1. ADCIRCA (TADAFINIL) [Concomitant]
  2. VENTAVIS [Suspect]
     Active Substance: ILOPROST
     Indication: PULMONARY ARTERIAL HYPERTENSION
     Dosage: RESPIRATORY
     Dates: start: 20100504

REACTIONS (2)
  - Hypercapnia [None]
  - Hypoxia [None]

NARRATIVE: CASE EVENT DATE: 20140722
